FAERS Safety Report 5980187-X (Version None)
Quarter: 2008Q4

REPORT INFORMATION
  Report Type: 
  Country: None (occurrence: None)
  Receive Date: 20081202
  Receipt Date: 20081202
  Transmission Date: 20090506
  Serious: Yes (Other)
  Sender: FDA-Public Use
  Company Number: None

PATIENT
  Age: 40 Year
  Sex: Female
  Weight: 78.9259 kg

DRUGS (9)
  1. ADDERALL XR 5 [Suspect]
     Indication: ATTENTION DEFICIT/HYPERACTIVITY DISORDER
     Dosage: 5 MG ONE CAPSULE DAILY PO
     Route: 048
     Dates: start: 20081119, end: 20081125
  2. OXYCONTIN [Concomitant]
  3. OXYCODONE HCL [Concomitant]
  4. WELLBUTRIN SR [Concomitant]
  5. CLARITIN-D [Concomitant]
  6. ZETEC-D [Concomitant]
  7. FISH OIL [Concomitant]
  8. OMEGA-3/OMEGA-6 [Concomitant]
  9. PRESCRIPTIVE FORMULA OPTIMAL VITAMIN PACK [Concomitant]

REACTIONS (12)
  - ABNORMAL BEHAVIOUR [None]
  - AGITATION [None]
  - AMNESIA [None]
  - BRADYPHRENIA [None]
  - FATIGUE [None]
  - GAIT DISTURBANCE [None]
  - INCOHERENT [None]
  - IRRITABILITY [None]
  - PERSONALITY CHANGE [None]
  - REPETITIVE SPEECH [None]
  - SEDATION [None]
  - SLEEP ATTACKS [None]
